FAERS Safety Report 17259954 (Version 1)
Quarter: 2020Q1

REPORT INFORMATION
  Report Type: Spontaneous
  Country: GB (occurrence: GB)
  Receive Date: 20200111
  Receipt Date: 20200111
  Transmission Date: 20200409
  Serious: Yes (Disabling, Other)
  Sender: FDA-Public Use
  Company Number: GB-AUROBINDO-AUR-APL-2020-001209

PATIENT
  Age: 18 Year
  Sex: Female
  Weight: 50.8 kg

DRUGS (7)
  1. BEDRANOL [Suspect]
     Active Substance: PROPRANOLOL HYDROCHLORIDE
     Indication: PRODUCT USED FOR UNKNOWN INDICATION
     Dosage: UNK
     Route: 065
  2. PROPRANOLOL [Suspect]
     Active Substance: PROPRANOLOL HYDROCHLORIDE
     Indication: MIGRAINE
     Dosage: 120 MILLIGRAM (120MG OF PROPRANOLOL (80MG SR AND 40MG REGULAR)
     Route: 065
  3. DULOXETINE. [Suspect]
     Active Substance: DULOXETINE
     Indication: MIGRAINE
     Dosage: 60 MILLIGRAM, ONCE A DAY
     Route: 048
     Dates: start: 201806, end: 201808
  4. TOPIRAMATE. [Suspect]
     Active Substance: TOPIRAMATE
     Indication: MIGRAINE
     Dosage: 25 MILLIGRAM, ONCE A DAY
     Route: 048
     Dates: start: 201706, end: 201808
  5. CETIRIZINE DIHYDROCHLORIDE [Concomitant]
     Active Substance: CETIRIZINE HYDROCHLORIDE
     Indication: SEASONAL ALLERGY
     Dosage: 10 MILLIGRAM
     Route: 065
  6. MEBEVERINE HYDROCHLORIDE [Concomitant]
     Active Substance: MEBEVERINE HYDROCHLORIDE
     Indication: IRRITABLE BOWEL SYNDROME
     Dosage: UNK
     Route: 065
  7. LANSOPRAZOLE. [Concomitant]
     Active Substance: LANSOPRAZOLE
     Indication: IRRITABLE BOWEL SYNDROME
     Dosage: UNK
     Route: 065

REACTIONS (32)
  - Asthenia [Not Recovered/Not Resolved]
  - Condition aggravated [Unknown]
  - Confusional state [Recovered/Resolved]
  - Rhinitis allergic [Unknown]
  - Vision blurred [Recovered/Resolved with Sequelae]
  - Constipation [Recovered/Resolved with Sequelae]
  - Depression suicidal [Not Recovered/Not Resolved]
  - Hunger [Unknown]
  - Mental impairment [Not Recovered/Not Resolved]
  - Migraine [Unknown]
  - Nausea [Unknown]
  - Suicidal ideation [Recovering/Resolving]
  - Heart rate increased [Unknown]
  - Dizziness [Recovered/Resolved]
  - Libido increased [Unknown]
  - Tearfulness [Recovered/Resolved with Sequelae]
  - Bradyphrenia [Not Recovered/Not Resolved]
  - Hypoaesthesia [Unknown]
  - Paraesthesia [Recovered/Resolved]
  - Abnormal weight gain [Recovered/Resolved with Sequelae]
  - Irritability [Recovered/Resolved]
  - Mania [Recovered/Resolved]
  - Memory impairment [Not Recovered/Not Resolved]
  - Dry mouth [Recovered/Resolved]
  - Fatigue [Not Recovered/Not Resolved]
  - Insomnia [Recovered/Resolved]
  - Somnolence [Recovered/Resolved]
  - Abnormal loss of weight [Recovered/Resolved]
  - Depressed mood [Not Recovered/Not Resolved]
  - Dyspnoea [Unknown]
  - Menstruation irregular [Recovered/Resolved]
  - Withdrawal syndrome [Unknown]

NARRATIVE: CASE EVENT DATE: 201706
